FAERS Safety Report 12386895 (Version 1)
Quarter: 2016Q2

REPORT INFORMATION
  Report Type: Spontaneous
  Country: CZ (occurrence: CZ)
  Receive Date: 20160519
  Receipt Date: 20160519
  Transmission Date: 20160815
  Serious: Yes (Other)
  Sender: FDA-Public Use
  Company Number: CZ-PFIZER INC-2016259800

PATIENT
  Sex: Female
  Weight: 90 kg

DRUGS (2)
  1. SOLU-MEDROL [Suspect]
     Active Substance: METHYLPREDNISOLONE SODIUM SUCCINATE
     Indication: HERPES GESTATIONIS
     Dosage: 12 MG, DAILY
     Route: 042
  2. HYDROCORTISONE. [Suspect]
     Active Substance: HYDROCORTISONE
     Dosage: 8900 MG, UNK

REACTIONS (6)
  - Condition aggravated [Unknown]
  - Skin striae [Unknown]
  - Cushingoid [Unknown]
  - Hypokalaemia [Unknown]
  - Anaemia of pregnancy [Unknown]
  - Acne [Unknown]
